FAERS Safety Report 10264565 (Version 2)
Quarter: 2014Q3

REPORT INFORMATION
  Report Type: Other
  Country: IT (occurrence: IT)
  Receive Date: 20140627
  Receipt Date: 20140915
  Transmission Date: 20150326
  Serious: Yes (Hospitalization)
  Sender: FDA-Public Use
  Company Number: IT-SUN PHARMACEUTICAL INDUSTRIES LTD-2014SUN01437

PATIENT

DRUGS (5)
  1. SERTRALINE HYDROCHLORIDE. [Concomitant]
     Active Substance: SERTRALINE HYDROCHLORIDE
     Indication: PRODUCT USED FOR UNKNOWN INDICATION
  2. OLANZAPINA SUN 10 MG COMPRESSA [Suspect]
     Active Substance: OLANZAPINE
     Indication: SUICIDE ATTEMPT
     Dosage: 130 MG TOTAL
     Route: 048
     Dates: start: 20140601, end: 20140601
  3. TRUVADA 30 COMPRESSE RIVESTITE CON FILM IN FLACONE HDPE DA 200 MG/245 [Concomitant]
     Indication: ACQUIRED IMMUNODEFICIENCY SYNDROME
  4. LYRICA [Suspect]
     Active Substance: PREGABALIN
     Indication: SUICIDE ATTEMPT
     Dosage: 5 DF TOTAL
     Route: 048
     Dates: start: 20140601, end: 20140601
  5. ISOTREX ^0,05% GEL^ TUBO DA 30 G [Concomitant]
     Indication: PRODUCT USED FOR UNKNOWN INDICATION

REACTIONS (4)
  - Bradykinesia [Recovering/Resolving]
  - Drug abuse [Recovering/Resolving]
  - Agitation [Recovering/Resolving]
  - Hypotension [Recovering/Resolving]

NARRATIVE: CASE EVENT DATE: 20140601
